FAERS Safety Report 15699803 (Version 1)
Quarter: 2018Q4

REPORT INFORMATION
  Report Type: Spontaneous
  Country: US (occurrence: US)
  Receive Date: 20181207
  Receipt Date: 20181207
  Transmission Date: 20190205
  Serious: Yes (Other)
  Sender: FDA-Public Use
  Company Number: US-BAYER-2018-223211

PATIENT
  Age: 55 Year
  Sex: Male

DRUGS (3)
  1. BAYER ASPIRIN [Suspect]
     Active Substance: ASPIRIN
  2. WARFARIN [Interacting]
     Active Substance: WARFARIN
  3. HEPARIN [Interacting]
     Active Substance: HEPARIN SODIUM

REACTIONS (4)
  - Haemorrhage intracranial [None]
  - Medical device site thrombosis [None]
  - Labelled drug-drug interaction medication error [None]
  - Contraindicated product administered [None]
